FAERS Safety Report 6903807-1 (Version None)
Quarter: 2010Q3

REPORT INFORMATION
  Report Type: 
  Country: None (occurrence: None)
  Receive Date: 20100804
  Receipt Date: 20081229
  Transmission Date: 20110219
  Serious: No
  Sender: FDA-Public Use
  Company Number: US-PFIZER INC-2008098490

PATIENT
  Sex: Female
  Weight: 72.7 kg

DRUGS (5)
  1. LYRICA [Suspect]
     Dosage: 75 MG, 1X/DAY
     Dates: start: 20080901
  2. REMERON [Concomitant]
  3. CLONAZEPAM [Concomitant]
  4. SIMVASTATIN [Concomitant]
  5. DILTIA XT [Concomitant]

REACTIONS (2)
  - HUNGER [None]
  - WEIGHT INCREASED [None]
